FAERS Safety Report 13666730 (Version 1)
Quarter: 2017Q2

REPORT INFORMATION
  Report Type: Spontaneous
  Country: US (occurrence: US)
  Receive Date: 20170619
  Receipt Date: 20170619
  Transmission Date: 20170830
  Serious: No
  Sender: FDA-Public Use
  Company Number: US-ROCHE-1396728

PATIENT
  Sex: Female

DRUGS (7)
  1. ALLOPURINOL. [Concomitant]
     Active Substance: ALLOPURINOL
     Route: 048
  2. XELODA [Suspect]
     Active Substance: CAPECITABINE
     Indication: COLON CANCER
     Route: 048
     Dates: start: 20140411
  3. ASPIRIN. [Concomitant]
     Active Substance: ASPIRIN
     Route: 065
  4. ATENOLOL. [Concomitant]
     Active Substance: ATENOLOL
     Route: 048
  5. SYNTHROID [Concomitant]
     Active Substance: LEVOTHYROXINE SODIUM
     Route: 048
  6. LISINOPRIL. [Concomitant]
     Active Substance: LISINOPRIL
     Route: 048
  7. REPAGLINIDE. [Concomitant]
     Active Substance: REPAGLINIDE
     Route: 048

REACTIONS (2)
  - Dry skin [Not Recovered/Not Resolved]
  - Nausea [Recovered/Resolved]
